FAERS Safety Report 9244560 (Version 2)
Quarter: 2013Q2

REPORT INFORMATION
  Report Type: Spontaneous
  Country: JP (occurrence: JP)
  Receive Date: 20130422
  Receipt Date: 20130423
  Transmission Date: 20140414
  Serious: Yes (Other)
  Sender: FDA-Public Use
  Company Number: JP-BRISTOL-MYERS SQUIBB COMPANY-18777938

PATIENT
  Age: 73 Year
  Sex: Male

DRUGS (1)
  1. BYETTA PEN DISPOSABLE [Suspect]
     Indication: DIABETES MELLITUS
     Dosage: INJECTION
     Route: 058

REACTIONS (2)
  - Colon cancer [Unknown]
  - Nausea [Unknown]
